FAERS Safety Report 8344745-X (Version None)
Quarter: 2012Q2

REPORT INFORMATION
  Report Type: 
  Country: None (occurrence: None)
  Receive Date: 20120402
  Receipt Date: 20120126
  Transmission Date: 20120825
  Serious: Yes (Hospitalization, Disabling, Other)
  Sender: FDA-Public Use
  Company Number: 319569USA

PATIENT
  Age: 97 Year
  Sex: Female

DRUGS (2)
  1. ALENDRONATE SODIUM [Suspect]
     Indication: OSTEOPOROSIS
     Dates: start: 19990101, end: 20080201
  2. ALENDRONIC ACID [Suspect]
     Indication: OSTEOPOROSIS
     Dates: start: 20080301, end: 20110301

REACTIONS (3)
  - FEMUR FRACTURE [None]
  - LOW TURNOVER OSTEOPATHY [None]
  - BONE DISORDER [None]
